FAERS Safety Report 5294313-1 (Version None)
Quarter: 2007Q2

REPORT INFORMATION
  Report Type: 
  Country: None (occurrence: None)
  Receive Date: 20070406
  Receipt Date: 20070207
  Transmission Date: 20071010
  Serious: Yes (Other)
  Sender: FDA-Public Use
  Company Number: 2007SP005543

PATIENT
  Age: 77 Year
  Sex: Female

DRUGS (7)
  1. CLARITIN-D 24 HOUR [Suspect]
     Indication: NASAL CONGESTION
  2. CLARITIN-D 24 HOUR [Suspect]
     Indication: POSTNASAL DRIP
  3. CLARITIN-D 24 HOUR [Suspect]
     Indication: PULMONARY CONGESTION
  4. MUCINEX [Concomitant]
  5. VITAMINS [Concomitant]
  6. THYROID TAB [Concomitant]
  7. EVISTA [Concomitant]

REACTIONS (1)
  - BLOOD PRESSURE INCREASED [None]
